FAERS Safety Report 24231209 (Version 1)
Quarter: 2024Q3

REPORT INFORMATION
  Report Type: Spontaneous
  Country: FR (occurrence: FR)
  Receive Date: 20240821
  Receipt Date: 20240821
  Transmission Date: 20241016
  Serious: Yes (Other)
  Sender: CHEPLAPHARM
  Company Number: FR-CHEPLA-2024010573

PATIENT
  Age: 32 Year
  Sex: Male

DRUGS (7)
  1. HYDROXYUREA [Suspect]
     Active Substance: HYDROXYUREA
     Indication: Sickle cell disease
  2. PREDNISONE [Suspect]
     Active Substance: PREDNISONE
     Indication: Myelodysplastic syndrome
  3. PREDNISONE [Suspect]
     Active Substance: PREDNISONE
     Indication: Polyarteritis nodosa
  4. PREDNISONE [Suspect]
     Active Substance: PREDNISONE
     Indication: Myelodysplastic syndrome
     Dosage: GRADUAL REDUCTION?DAILY DOSE: 5 MILLIGRAM
  5. PREDNISONE [Suspect]
     Active Substance: PREDNISONE
     Indication: Polyarteritis nodosa
     Dosage: GRADUAL REDUCTION?DAILY DOSE: 5 MILLIGRAM
  6. AZACITIDINE [Suspect]
     Active Substance: AZACITIDINE
     Indication: Myelodysplastic syndrome
     Dosage: 3 COURSES
  7. AZACITIDINE [Suspect]
     Active Substance: AZACITIDINE
     Indication: Polyarteritis nodosa
     Dosage: 3 COURSES

REACTIONS (4)
  - Myelodysplastic syndrome [Unknown]
  - Polyarteritis nodosa [Recovering/Resolving]
  - Graft versus host disease [Unknown]
  - Condition aggravated [Unknown]
